FAERS Safety Report 7609763-5 (Version None)
Quarter: 2011Q3

REPORT INFORMATION
  Report Type: 
  Country: None (occurrence: None)
  Receive Date: 20110714
  Receipt Date: 20110706
  Transmission Date: 20111222
  Serious: Yes (Life-Threatening, Hospitalization)
  Sender: FDA-Public Use
  Company Number: JP-AMGEN-JPNCT2011021487

PATIENT
  Age: 36 Year
  Sex: Male
  Weight: 70 kg

DRUGS (10)
  1. FLUOROURACIL [Suspect]
     Indication: COLORECTAL CANCER
     Route: 040
     Dates: start: 20110324, end: 20110324
  2. FLUOROURACIL [Suspect]
     Dosage: 4543 MG, Q2WK
     Route: 041
     Dates: start: 20110324
  3. TOPOTECAN [Suspect]
     Route: 041
     Dates: start: 20110407, end: 20110407
  4. FLUOROURACIL [Suspect]
     Route: 041
     Dates: start: 20110407, end: 20110409
  5. FLUOROURACIL [Suspect]
     Route: 040
     Dates: start: 20110407, end: 20110407
  6. TOPOTECAN [Suspect]
     Indication: COLORECTAL CANCER
     Route: 041
     Dates: start: 20110324, end: 20110324
  7. ISOVORIN [Suspect]
     Indication: COLORECTAL CANCER
     Route: 041
     Dates: start: 20110324, end: 20110324
  8. ISOVORIN [Suspect]
     Route: 041
     Dates: start: 20110407, end: 20110407
  9. PANITUMUMAB [Suspect]
     Indication: COLORECTAL CANCER METASTATIC
     Dosage: 487.2 MG, Q2WK
     Route: 041
     Dates: start: 20110324, end: 20110407
  10. FLUOROURACIL [Suspect]
     Dosage: 4543 MG, Q2WK
     Route: 041
     Dates: start: 20110324

REACTIONS (1)
  - PANCREATITIS ACUTE [None]
